FAERS Safety Report 5135106-5 (Version None)
Quarter: 2006Q4

REPORT INFORMATION
  Report Type: 
  Country: None (occurrence: None)
  Receive Date: 20060831
  Receipt Date: 20060713
  Transmission Date: 20070319
  Serious: No
  Sender: FDA-Public Use
  Company Number: 2006-BP-05853BP

PATIENT
  Age: 65 Year
  Sex: Male
  Weight: 62.6 kg

DRUGS (19)
  1. SPIRIVA [Suspect]
     Indication: CHRONIC OBSTRUCTIVE PULMONARY DISEASE
     Dosage: 18 MCG (18 MCG,1 QD),IH
     Dates: start: 20060401
  2. SPIRIVA [Suspect]
     Indication: EMPHYSEMA
     Dosage: 18 MCG (18 MCG,1 QD),IH
     Dates: start: 20060401
  3. SPIRIVA [Suspect]
     Indication: PNEUMONIA
     Dosage: 18 MCG (18 MCG,1 QD),IH
     Dates: start: 20060401
  4. SPIRIVA [Suspect]
  5. SPIRIVA [Suspect]
  6. CELEBREX [Concomitant]
  7. ZYPREXA [Concomitant]
  8. PRILOSEC [Concomitant]
  9. OXYCODONE HCL [Concomitant]
  10. OXYCONTIN [Concomitant]
  11. TRAZODONE HCL [Concomitant]
  12. AMBIEN [Concomitant]
  13. LEXAPRO [Concomitant]
  14. LIPITOR [Concomitant]
  15. COSOPT [Concomitant]
  16. ALPHAGAN [Concomitant]
  17. ZALATAN [Concomitant]
  18. PLAVIX [Concomitant]
  19. NITROSTAT [Concomitant]

REACTIONS (1)
  - CHOKING [None]
